FAERS Safety Report 6280662-7 (Version None)
Quarter: 2009Q3

REPORT INFORMATION
  Report Type: 
  Country: None (occurrence: None)
  Receive Date: 20090724
  Receipt Date: 20081106
  Transmission Date: 20100115
  Serious: No
  Sender: FDA-Public Use
  Company Number: A0755847A

PATIENT
  Sex: Female

DRUGS (4)
  1. AVANDIA [Suspect]
     Indication: DRUG USE FOR UNKNOWN INDICATION
     Route: 065
  2. INSULIN [Concomitant]
  3. BYETTA [Concomitant]
  4. DIABETES MEDICATION [Concomitant]

REACTIONS (2)
  - COUGH [None]
  - DRUG HYPERSENSITIVITY [None]
